FAERS Safety Report 23878559 (Version 2)
Quarter: 2024Q3

REPORT INFORMATION
  Report Type: Spontaneous
  Country: CO (occurrence: CO)
  Receive Date: 20240521
  Receipt Date: 20240715
  Transmission Date: 20241017
  Serious: No
  Sender: PFIZER
  Company Number: CO-PFIZER INC-PV202400064183

PATIENT

DRUGS (1)
  1. GENOTROPIN [Suspect]
     Active Substance: SOMATROPIN
     Dosage: 1.6MG AND 1.8MG INTERDAY EACH DOSE, DAILY
     Route: 058
     Dates: start: 20240101

REACTIONS (2)
  - Wrong technique in product usage process [Unknown]
  - Device use issue [Unknown]
